FAERS Safety Report 8781105 (Version 1)
Quarter: 2012Q4

REPORT INFORMATION
  Report Type: 
  Country: GB (occurrence: GB)
  Receive Date: 20120913
  Receipt Date: 20120913
  Transmission Date: 20130627
  Serious: Yes (Other)
  Sender: FDA-Public Use
  Company Number: GB-ROCHE-1125287

PATIENT
  Age: 27 Year
  Sex: Female

DRUGS (2)
  1. NAPROXEN [Suspect]
     Indication: COSTOCHONDRITIS
     Route: 065
     Dates: start: 20120816, end: 20120820
  2. FLUOXETINE [Concomitant]
     Indication: DEPRESSION
     Route: 048
     Dates: end: 20120504

REACTIONS (2)
  - Emotional distress [Unknown]
  - Hallucination [Recovered/Resolved]
